FAERS Safety Report 18526054 (Version 9)
Quarter: 2021Q2

REPORT INFORMATION
  Report Type: Report from Study
  Country: US (occurrence: US)
  Receive Date: 20201120
  Receipt Date: 20210506
  Transmission Date: 20210717
  Serious: Yes (Hospitalization, Other)
  Sender: FDA-Public Use
  Company Number: US-GILEAD-2020-0503719

PATIENT
  Age: 46 Year
  Sex: Male

DRUGS (6)
  1. LASIX [Concomitant]
     Active Substance: FUROSEMIDE
  2. AMBRISENTAN [Suspect]
     Active Substance: AMBRISENTAN
     Indication: PULMONARY ARTERIAL HYPERTENSION
     Dosage: 10 MG, QD
     Route: 048
     Dates: start: 20200129
  3. AMBRISENTAN [Suspect]
     Active Substance: AMBRISENTAN
     Indication: PULMONARY HYPERTENSION
  4. VELETRI [Concomitant]
     Active Substance: EPOPROSTENOL
  5. SILDENAFIL. [Concomitant]
     Active Substance: SILDENAFIL
  6. COVID?19 VACCINE NOS. [Concomitant]
     Active Substance: COVID-19 VACCINE NOS

REACTIONS (19)
  - Neoplasm [Unknown]
  - Neck surgery [Not Recovered/Not Resolved]
  - Tooth extraction [Not Recovered/Not Resolved]
  - Colitis [Not Recovered/Not Resolved]
  - Musculoskeletal pain [Not Recovered/Not Resolved]
  - Pain in extremity [Not Recovered/Not Resolved]
  - Oedema [Not Recovered/Not Resolved]
  - Headache [Not Recovered/Not Resolved]
  - Spinal cord neoplasm [Not Recovered/Not Resolved]
  - Diarrhoea [Not Recovered/Not Resolved]
  - Clostridium difficile infection [Unknown]
  - Somnolence [Not Recovered/Not Resolved]
  - Pain in jaw [Not Recovered/Not Resolved]
  - Abscess [Not Recovered/Not Resolved]
  - Feeling hot [Recovering/Resolving]
  - Flushing [Not Recovered/Not Resolved]
  - Weight decreased [Not Recovered/Not Resolved]
  - Heart rate increased [Unknown]
  - Fatigue [Not Recovered/Not Resolved]
